FAERS Safety Report 20873983 (Version 2)
Quarter: 2022Q2

REPORT INFORMATION
  Report Type: Spontaneous
  Country: BG (occurrence: BG)
  Receive Date: 20220525
  Receipt Date: 20220601
  Transmission Date: 20220720
  Serious: Yes (Death, Life-Threatening, Hospitalization, Other)
  Sender: FDA-Public Use
  Company Number: BG-MLMSERVICE-20220516-3561806-1

PATIENT
  Age: 11 Year
  Sex: Male

DRUGS (4)
  1. METHYLPREDNISOLONE [Suspect]
     Active Substance: METHYLPREDNISOLONE
     Indication: COVID-19
     Dosage: 1 MG/KG
     Dates: start: 2021
  2. CEFTRIAXONE [Concomitant]
     Active Substance: CEFTRIAXONE
     Indication: COVID-19
     Dosage: UNK
     Dates: start: 2021
  3. CLARITHROMYCIN [Concomitant]
     Active Substance: CLARITHROMYCIN
     Indication: COVID-19
     Dosage: UNK
     Dates: start: 202109
  4. ANTISTENOCARDIN [Concomitant]
     Indication: COVID-19
     Dosage: UNK
     Dates: start: 2021

REACTIONS (3)
  - Pulmonary mucormycosis [Fatal]
  - Haemoptysis [Fatal]
  - Off label use [Unknown]

NARRATIVE: CASE EVENT DATE: 20210920
